FAERS Safety Report 23925697 (Version 1)
Quarter: 2024Q2

REPORT INFORMATION
  Report Type: Spontaneous
  Country: US (occurrence: US)
  Receive Date: 20240531
  Receipt Date: 20240531
  Transmission Date: 20240722
  Serious: No
  Sender: FDA-Public Use
  Company Number: US-LUPIN PHARMACEUTICALS INC.-2024-04364

PATIENT

DRUGS (4)
  1. ATOVAQUONE ORAL SUSPENSION [Suspect]
     Active Substance: ATOVAQUONE
     Indication: Prophylaxis
     Dosage: UNK
     Route: 065
     Dates: start: 202311
  2. ATOVAQUONE ORAL SUSPENSION [Suspect]
     Active Substance: ATOVAQUONE
     Dosage: UNK, QD, 2 TEA SPOONS ONCE A DAY WITH FOOD
     Route: 065
     Dates: start: 20240512
  3. ACYCLOVIR [Concomitant]
     Active Substance: ACYCLOVIR
     Indication: Herpes zoster
     Dosage: UNK
     Route: 065
  4. AMLODIPINE [Concomitant]
     Active Substance: AMLODIPINE BESYLATE
     Indication: Blood pressure abnormal
     Dosage: 2.5 MILLIGRAM
     Route: 065

REACTIONS (3)
  - Off label use [Unknown]
  - Product taste abnormal [Unknown]
  - Product odour abnormal [Unknown]
